FAERS Safety Report 7098195-7 (Version None)
Quarter: 2010Q4

REPORT INFORMATION
  Report Type: 
  Country: None (occurrence: None)
  Receive Date: 20101112
  Receipt Date: 20100325
  Transmission Date: 20110411
  Serious: No
  Sender: FDA-Public Use
  Company Number: US-KINGPHARMUSA00001-K201000368

PATIENT
  Sex: Female
  Weight: 60.317 kg

DRUGS (4)
  1. BICILLIN L-A [Suspect]
     Indication: LYME DISEASE
     Dosage: 1.2 MILLION UNITS, BIW
     Route: 030
     Dates: start: 20090801
  2. BICILLIN L-A [Suspect]
     Dosage: 1.2 MILLION UNITS, BIW
     Dates: start: 20100307, end: 20100325
  3. PRILOSEC [Suspect]
     Indication: GASTROOESOPHAGEAL REFLUX DISEASE
     Dosage: UNK
     Route: 048
     Dates: end: 20100301
  4. ANTIBIOTICS [Suspect]
     Dosage: UNK
     Dates: end: 20090101

REACTIONS (4)
  - DIZZINESS [None]
  - HEADACHE [None]
  - PALPITATIONS [None]
  - TINNITUS [None]
